FAERS Safety Report 7229235-X (Version None)
Quarter: 2011Q1

REPORT INFORMATION
  Report Type: 
  Country: None (occurrence: None)
  Receive Date: 20110117
  Receipt Date: 20110104
  Transmission Date: 20110831
  Serious: Yes (Other)
  Sender: FDA-Public Use
  Company Number: US-ELI_LILLY_AND_COMPANY-US201101001151

PATIENT
  Age: 28 Year
  Sex: Male

DRUGS (5)
  1. CYMBALTA [Suspect]
     Indication: ANXIETY
     Dosage: 30 MG, DAILY (1/D)
     Dates: end: 20101201
  2. CYMBALTA [Suspect]
     Dosage: 60 MG, DAILY (1/D)
     Dates: start: 20101201
  3. FLUOXETINE HYDROCHLORIDE [Suspect]
     Dosage: 20 MG, UNK
  4. TRAZODIL [Concomitant]
     Dosage: 50 MG, EACH EVENING
  5. ALCOHOL [Concomitant]

REACTIONS (6)
  - DEPRESSION [None]
  - LOSS OF CONSCIOUSNESS [None]
  - PSYCHOTIC BEHAVIOUR [None]
  - ALCOHOLISM [None]
  - ABNORMAL BEHAVIOUR [None]
  - MANIA [None]
